FAERS Safety Report 16973832 (Version 2)
Quarter: 2019Q4

REPORT INFORMATION
  Report Type: Spontaneous
  Country: US (occurrence: US)
  Receive Date: 20191030
  Receipt Date: 20191113
  Transmission Date: 20200122
  Serious: No
  Sender: FDA-Public Use
  Company Number: US-PFIZER INC-2019351590

PATIENT
  Age: 64 Year
  Sex: Male

DRUGS (4)
  1. INLYTA [Suspect]
     Active Substance: AXITINIB
     Dosage: 8 MG, DAILY (1MG AND 5MG FOR A TOTAL OF 8MG PER DAY)
  2. INLYTA [Suspect]
     Active Substance: AXITINIB
     Indication: RENAL CANCER
     Dosage: 5 MG, UNK
     Dates: start: 201808
  3. INLYTA [Suspect]
     Active Substance: AXITINIB
     Dosage: 8 MG, 1X/DAY (3 MG IN MORNING AND 5 MG IN THE EVENING)
  4. INLYTA [Suspect]
     Active Substance: AXITINIB
     Dosage: 5 MG, 2X/DAY (5 MG IN MORNING AND 5 MG IN EVENING)

REACTIONS (1)
  - Mental disorder [Unknown]
